FAERS Safety Report 7470568-X (Version None)
Quarter: 2011Q2

REPORT INFORMATION
  Report Type: 
  Country: None (occurrence: None)
  Receive Date: 20110510
  Receipt Date: 20110427
  Transmission Date: 20111010
  Serious: Yes (Other)
  Sender: FDA-Public Use
  Company Number: CA-JNJFOC-20101201411

PATIENT
  Sex: Female
  Weight: 73 kg

DRUGS (9)
  1. RANITIDINE [Concomitant]
  2. METFFORMIN HYDROCHLORIDE [Concomitant]
  3. DIAMICRON [Concomitant]
  4. ASPIRIN [Concomitant]
  5. METHOTREXATE [Concomitant]
  6. AVALIDE [Concomitant]
  7. CALCIUM [Concomitant]
  8. REMICADE [Suspect]
     Indication: RHEUMATOID ARTHRITIS
     Route: 042
  9. METOPROLOL SUCCINATE [Concomitant]

REACTIONS (1)
  - TRANSIENT ISCHAEMIC ATTACK [None]
